FAERS Safety Report 13522727 (Version 1)
Quarter: 2017Q2

REPORT INFORMATION
  Report Type: Spontaneous
  Country: AU (occurrence: AU)
  Receive Date: 20170508
  Receipt Date: 20170508
  Transmission Date: 20170830
  Serious: Yes (Other)
  Sender: FDA-Public Use
  Company Number: AU-PFIZER INC-2017190610

PATIENT
  Sex: Male

DRUGS (1)
  1. PRISTIQ EXTENDED-RELEASE [Suspect]
     Active Substance: DESVENLAFAXINE SUCCINATE
     Dosage: UNK

REACTIONS (8)
  - Sleep disorder [Unknown]
  - Erectile dysfunction [Unknown]
  - Anxiety [Unknown]
  - Thinking abnormal [Unknown]
  - Memory impairment [Unknown]
  - Brain injury [Unknown]
  - Withdrawal syndrome [Unknown]
  - Confusional state [Unknown]
